FAERS Safety Report 20841630 (Version 1)
Quarter: 2022Q2

REPORT INFORMATION
  Report Type: Spontaneous
  Country: US (occurrence: US)
  Receive Date: 20220518
  Receipt Date: 20220518
  Transmission Date: 20220721
  Serious: Yes (Hospitalization)
  Sender: FDA-Public Use
  Company Number: US-STRIDES ARCOLAB LIMITED-2022SP003254

PATIENT
  Age: 12 Month
  Sex: Female

DRUGS (17)
  1. LEVETIRACETAM [Suspect]
     Active Substance: LEVETIRACETAM
     Indication: Epilepsia partialis continua
     Dosage: UNK
     Route: 065
  2. LEVETIRACETAM [Suspect]
     Active Substance: LEVETIRACETAM
     Dosage: UNK, (HIGH DOSES)
     Route: 065
  3. CLONAZEPAM [Suspect]
     Active Substance: CLONAZEPAM
     Indication: Epilepsia partialis continua
     Dosage: UNK
     Route: 065
  4. DIAZEPAM [Suspect]
     Active Substance: DIAZEPAM
     Indication: Epilepsia partialis continua
     Dosage: UNK
     Route: 065
  5. PHENOBARBITAL [Suspect]
     Active Substance: PHENOBARBITAL
     Indication: Epilepsia partialis continua
     Dosage: UNK
     Route: 065
  6. FOSPHENYTOIN [Suspect]
     Active Substance: FOSPHENYTOIN
     Indication: Epilepsia partialis continua
     Dosage: UNK
     Route: 065
  7. FOSPHENYTOIN [Suspect]
     Active Substance: FOSPHENYTOIN
     Dosage: UNK, (HIGH DOSES)
     Route: 065
  8. MIDAZOLAM [Suspect]
     Active Substance: MIDAZOLAM
     Indication: Epilepsia partialis continua
     Dosage: UNK
     Route: 065
  9. MIDAZOLAM [Suspect]
     Active Substance: MIDAZOLAM
     Dosage: UNK, (HIGH DOSES)
     Route: 065
  10. PENTOBARBITAL [Suspect]
     Active Substance: PENTOBARBITAL
     Indication: Epilepsia partialis continua
     Dosage: UNK
     Route: 065
  11. PENTOBARBITAL [Suspect]
     Active Substance: PENTOBARBITAL
     Dosage: UNK, (THERAPEUTIC PENTOBARBITAL COMA)
     Route: 065
  12. LORAZEPAM [Suspect]
     Active Substance: LORAZEPAM
     Indication: Epilepsia partialis continua
     Dosage: UNK
     Route: 065
  13. LACOSAMIDE [Suspect]
     Active Substance: LACOSAMIDE
     Indication: Epilepsia partialis continua
     Dosage: UNK
     Route: 065
  14. PHENYTOIN [Suspect]
     Active Substance: PHENYTOIN
     Indication: Epilepsia partialis continua
     Dosage: UNK
     Route: 065
  15. VIGABATRIN [Suspect]
     Active Substance: VIGABATRIN
     Indication: Epilepsia partialis continua
     Dosage: UNK
     Route: 065
  16. TOPIRAMATE [Suspect]
     Active Substance: TOPIRAMATE
     Indication: Epilepsia partialis continua
     Dosage: UNK
     Route: 065
  17. OXCARBAZEPINE [Suspect]
     Active Substance: OXCARBAZEPINE
     Indication: Epilepsia partialis continua
     Dosage: UNK
     Route: 065

REACTIONS (3)
  - Drug ineffective [Unknown]
  - Therapy partial responder [Unknown]
  - Off label use [Unknown]
